FAERS Safety Report 15776656 (Version 5)
Quarter: 2019Q3

REPORT INFORMATION
  Report Type: Spontaneous
  Country: US (occurrence: US)
  Receive Date: 20181231
  Receipt Date: 20190723
  Transmission Date: 20191004
  Serious: Yes (Hospitalization)
  Sender: FDA-Public Use
  Company Number: US-PFIZER INC-2018534209

PATIENT
  Age: 40 Year
  Sex: Female
  Weight: 65.31 kg

DRUGS (4)
  1. DOCETAXEL. [Suspect]
     Active Substance: DOCETAXEL
     Indication: BREAST CANCER FEMALE
     Dosage: 128 MG, CYCLIC (04 CYCLES, EVERY 03 WEEKS)
     Dates: start: 20111215, end: 20120216
  2. NEOSAR [Concomitant]
     Active Substance: CYCLOPHOSPHAMIDE
     Indication: CHEMOTHERAPY
     Dosage: UNK
  3. DOCETAXEL. [Suspect]
     Active Substance: DOCETAXEL
     Indication: BREAST CANCER FEMALE
     Dosage: 128 MG, CYCLIC (04 CYCLES EVERY 03 WEEKS)
     Dates: start: 20111215, end: 20120216
  4. DOCEFREZ [Suspect]
     Active Substance: DOCETAXEL ANHYDROUS
     Indication: BREAST CANCER FEMALE
     Dosage: 128 MG, CYCLIC (04 CYCLES EVERY 03 WEEKS)
     Dates: start: 20111215, end: 20120216

REACTIONS (7)
  - Alopecia [Not Recovered/Not Resolved]
  - Major depression [Unknown]
  - Madarosis [Not Recovered/Not Resolved]
  - Hair colour changes [Not Recovered/Not Resolved]
  - Hair texture abnormal [Not Recovered/Not Resolved]
  - Psychotic disorder [Unknown]
  - Hair disorder [Not Recovered/Not Resolved]

NARRATIVE: CASE EVENT DATE: 2011
